FAERS Safety Report 16166701 (Version 1)
Quarter: 2019Q2

REPORT INFORMATION
  Report Type: Spontaneous
  Country: NO (occurrence: NO)
  Receive Date: 20190407
  Receipt Date: 20190407
  Transmission Date: 20190711
  Serious: Yes (Disabling)
  Sender: FDA-Public Use
  Company Number: PHHY2019NO076200

PATIENT
  Age: 60 Year
  Sex: Female

DRUGS (2)
  1. METHOTREXATE. [Suspect]
     Active Substance: METHOTREXATE
     Indication: PSORIASIS
     Dosage: 15 MG, QW
     Route: 048
     Dates: start: 2004, end: 2019
  2. FOLSYRE NAF [Concomitant]
     Active Substance: FOLIC ACID
     Indication: DRUG TOXICITY PROPHYLAXIS
     Dosage: 1 MG, (6 DAYS PER WEEK (ALL WEEKDAYS EXCEPT THE DAY WHEN SHE TAKES METHOTREXATE))
     Route: 048

REACTIONS (4)
  - Optic atrophy [Not Recovered/Not Resolved]
  - Ocular discomfort [Not Recovered/Not Resolved]
  - Visual impairment [Not Recovered/Not Resolved]
  - Photophobia [Not Recovered/Not Resolved]
